FAERS Safety Report 7215479-X (Version None)
Quarter: 2011Q1

REPORT INFORMATION
  Report Type: 
  Country: None (occurrence: None)
  Receive Date: 20110107
  Receipt Date: 20110103
  Transmission Date: 20110831
  Serious: Yes (Hospitalization)
  Sender: FDA-Public Use
  Company Number: A0867667A

PATIENT
  Age: 51 Year
  Sex: Female

DRUGS (9)
  1. VALTREX [Suspect]
     Indication: GENITAL HERPES
     Dosage: 1G PER DAY
     Route: 048
     Dates: start: 20020101
  2. ANTIBIOTICS [Concomitant]
  3. LISINOPRIL AND HYDROCHLOROTHIAZIDE [Concomitant]
     Indication: HYPERTENSION
     Route: 048
  4. MECLIZINE [Concomitant]
  5. IRON SUPPLEMENT [Concomitant]
  6. PHENERGAN [Concomitant]
  7. MULTIPLE MEDICATIONS [Concomitant]
  8. VYTORIN [Concomitant]
     Indication: BLOOD CHOLESTEROL INCREASED
  9. ESTRADIOL [Concomitant]
     Indication: POSTMENOPAUSE
     Dosage: 2MG PER DAY
     Route: 048

REACTIONS (5)
  - NAUSEA [None]
  - CHOLECYSTITIS [None]
  - CHOLECYSTITIS INFECTIVE [None]
  - SEPSIS [None]
  - VOMITING [None]
